FAERS Safety Report 8571726-3 (Version None)
Quarter: 2012Q3

REPORT INFORMATION
  Report Type: 
  Country: None (occurrence: None)
  Receive Date: 20120806
  Receipt Date: 20120802
  Transmission Date: 20120928
  Serious: Yes (Hospitalization, Other)
  Sender: FDA-Public Use
  Company Number: PHHY2011AU63836

PATIENT
  Sex: Female

DRUGS (6)
  1. ALPRAZOLAM [Concomitant]
     Dosage: 0.25 MG, BD
  2. CLOZARIL [Suspect]
     Dosage: 450 MG, UNK
     Route: 048
     Dates: start: 20050101
  3. CLOZARIL [Suspect]
     Indication: SCHIZOPHRENIA
     Dosage: 450 MG
     Route: 048
     Dates: start: 19981020
  4. CITALOPRAM HYDROBROMIDE [Concomitant]
     Dosage: 20 MG, DAILY
  5. COLECALCIFEROL [Concomitant]
     Dosage: 25 UG, DAILY
  6. CALCIUM CARBONATE [Concomitant]
     Dosage: 1 DF, DAILY

REACTIONS (1)
  - CATATONIA [None]
